FAERS Safety Report 7725736-6 (Version None)
Quarter: 2011Q3

REPORT INFORMATION
  Report Type: 
  Country: None (occurrence: None)
  Receive Date: 20110830
  Receipt Date: 20110815
  Transmission Date: 20111222
  Serious: Yes (Other)
  Sender: FDA-Public Use
  Company Number: 2011P1007820

PATIENT
  Age: 97 Year
  Sex: Female
  Weight: 63.5036 kg

DRUGS (3)
  1. 2 KINDS OF EYE DROPS (UNSPECIFIED) [Concomitant]
  2. CORRECTOL [Concomitant]
  3. FENTANYL-75 [Suspect]
     Indication: PAIN
     Dosage: 1 PATCH; Q72H
     Dates: start: 20070101

REACTIONS (11)
  - AGITATION [None]
  - HYPERTENSION [None]
  - PRODUCT QUALITY ISSUE [None]
  - CONTUSION [None]
  - GAIT DISTURBANCE [None]
  - ASTHENIA [None]
  - FEELING JITTERY [None]
  - FEELING ABNORMAL [None]
  - DRUG WITHDRAWAL SYNDROME [None]
  - URINARY TRACT INFECTION [None]
  - SKIN DISCOLOURATION [None]
